FAERS Safety Report 4435465-2 (Version None)
Quarter: 2004Q3

REPORT INFORMATION
  Report Type: 
  Country: None (occurrence: None)
  Receive Date: 20040826
  Receipt Date: 20040811
  Transmission Date: 20050211
  Serious: Yes (Death)
  Sender: FDA-Public Use
  Company Number: 0410007

PATIENT
  Sex: Female
  Weight: 4 kg

DRUGS (1)
  1. NITISINONE/COMPASS. USE [Suspect]
     Indication: AMINO ACID METABOLISM DISORDER
     Dosage: 1 MG/KG  MG/KG/DAY  ORAL
     Route: 048
     Dates: start: 20040402, end: 20040413

REACTIONS (4)
  - MULTI-ORGAN FAILURE [None]
  - POST PROCEDURAL COMPLICATION [None]
  - SHOCK HAEMORRHAGIC [None]
  - TRANSPLANT FAILURE [None]
